FAERS Safety Report 8774876 (Version 1)
Quarter: 2012Q4

REPORT INFORMATION
  Report Type: 
  Country: DE (occurrence: DE)
  Receive Date: 20120910
  Receipt Date: 20120910
  Transmission Date: 20130627
  Serious: Yes (Hospitalization, Congenital Anomaly)
  Sender: FDA-Public Use
  Company Number: DE-JNJFOC-20120814892

PATIENT
  Age: 0 Year
  Sex: Female
  Weight: 1.62 kg

DRUGS (13)
  1. RISPERDAL CONSTA [Suspect]
     Indication: FOETAL EXPOSURE DURING PREGNANCY
     Dosage: From gestational week 5 till 24-NOV-2011
     Route: 064
     Dates: end: 20111124
  2. RISPERDAL CONSTA [Suspect]
     Indication: FOETAL EXPOSURE DURING PREGNANCY
     Dosage: Until day 4 of the 4 th gestational week
     Route: 064
     Dates: start: 20110401
  3. SEROQUEL [Suspect]
     Indication: FOETAL EXPOSURE DURING PREGNANCY
     Route: 064
     Dates: end: 20111124
  4. SEROQUEL [Suspect]
     Indication: FOETAL EXPOSURE DURING PREGNANCY
     Route: 064
     Dates: start: 20110401
  5. PROMETHAZINE [Suspect]
     Indication: FOETAL EXPOSURE DURING PREGNANCY
     Route: 064
     Dates: start: 20110527
  6. PROMETHAZINE [Suspect]
     Indication: FOETAL EXPOSURE DURING PREGNANCY
     Route: 064
  7. PROMETHAZINE [Suspect]
     Indication: FOETAL EXPOSURE DURING PREGNANCY
     Route: 064
     Dates: end: 20111124
  8. CARBAMAZEPIN [Suspect]
     Indication: FOETAL EXPOSURE DURING PREGNANCY
     Route: 064
     Dates: start: 20110527, end: 20111124
  9. IBUPROFEN [Suspect]
     Indication: FOETAL EXPOSURE DURING PREGNANCY
     Route: 064
     Dates: start: 20110527, end: 20111124
  10. BETAMETHASONE [Suspect]
     Indication: FOETAL EXPOSURE DURING PREGNANCY
     Route: 064
     Dates: start: 20111120, end: 20111121
  11. ACETYLSALICYLIC ACID [Suspect]
     Indication: FOETAL EXPOSURE DURING PREGNANCY
     Route: 064
     Dates: end: 20111120
  12. MELPERONE [Suspect]
     Indication: FOETAL EXPOSURE DURING PREGNANCY
     Route: 064
     Dates: start: 20110409, end: 20110516
  13. TOLPERISONE [Suspect]
     Indication: FOETAL EXPOSURE DURING PREGNANCY
     Route: 064
     Dates: start: 20110409, end: 20110516

REACTIONS (4)
  - Oesophageal atresia [Recovered/Resolved with Sequelae]
  - Haemangioma congenital [Unknown]
  - Tracheo-oesophageal fistula [Recovered/Resolved with Sequelae]
  - Premature baby [Not Recovered/Not Resolved]
